FAERS Safety Report 17742702 (Version 1)
Quarter: 2020Q2

REPORT INFORMATION
  Report Type: Spontaneous
  Country: US (occurrence: US)
  Receive Date: 20200505
  Receipt Date: 20200505
  Transmission Date: 20200714
  Serious: No
  Sender: FDA-Public Use
  Company Number: US-ROCHE-2364495

PATIENT
  Sex: Female

DRUGS (2)
  1. ESBRIET [Suspect]
     Active Substance: PIRFENIDONE
     Indication: IDIOPATHIC PULMONARY FIBROSIS
     Dosage: TITRATED UP TO 3 PILLS THREE TIMES PER DAY
     Route: 048
     Dates: start: 2019
  2. ESBRIET [Suspect]
     Active Substance: PIRFENIDONE
     Dosage: 1 PILL THREE TIMES PER DAY
     Route: 048
     Dates: start: 20190722

REACTIONS (2)
  - Incorrect dose administered [Unknown]
  - No adverse event [Unknown]

NARRATIVE: CASE EVENT DATE: 20190722
